FAERS Safety Report 8760541 (Version 1)
Quarter: 2012Q4

REPORT INFORMATION
  Report Type: 
  Country: JP (occurrence: JP)
  Receive Date: 20120830
  Receipt Date: 20120830
  Transmission Date: 20130627
  Serious: Yes (Other)
  Sender: FDA-Public Use
  Company Number: PHHY2012JP073147

PATIENT
  Age: 47 Year
  Sex: Female

DRUGS (3)
  1. CICLOSPORIN [Suspect]
     Indication: BEHCET^S SYNDROME
  2. COLCHICINE [Suspect]
     Indication: BEHCET^S SYNDROME
  3. PREDNISOLONE [Suspect]
     Indication: BEHCET^S SYNDROME
     Dosage: 20 mg, QD

REACTIONS (6)
  - Behcet^s syndrome [Unknown]
  - Erythema nodosum [Unknown]
  - Uveitis [Unknown]
  - Visual acuity reduced [Unknown]
  - Choroiditis [Unknown]
  - Mouth ulceration [Unknown]
